FAERS Safety Report 14536772 (Version 1)
Quarter: 2018Q1

REPORT INFORMATION
  Report Type: Spontaneous
  Country: US (occurrence: US)
  Receive Date: 20180215
  Receipt Date: 20180215
  Transmission Date: 20180509
  Serious: Yes (Hospitalization)
  Sender: FDA-Public Use
  Company Number: None

PATIENT
  Age: 76 Year
  Sex: Female
  Weight: 73 kg

DRUGS (13)
  1. AMIODARONE [Concomitant]
     Active Substance: AMIODARONE
  2. COREG [Concomitant]
     Active Substance: CARVEDILOL
  3. ZESTRIL [Concomitant]
     Active Substance: LISINOPRIL
  4. BRILINTA [Suspect]
     Active Substance: TICAGRELOR
     Indication: CORONARY ARTERY DISEASE
     Route: 048
  5. MUCINEX [Concomitant]
     Active Substance: GUAIFENESIN
  6. APAP [Concomitant]
     Active Substance: ACETAMINOPHEN
  7. ATIVAN [Concomitant]
     Active Substance: LORAZEPAM
  8. VITAMIN B COMPLEX [Concomitant]
     Active Substance: CYANOCOBALAMIN\DEXPANTHENOL\NIACINAMIDE\PYRIDOXINE HYDROCHLORIDE\RIBOFLAVIN 5^-PHOSPHATE SODIUM\THIAMINE HYDROCHLORIDE\VITAMIN B COMPLEX
  9. K-DUR [Concomitant]
     Active Substance: POTASSIUM CHLORIDE
  10. FE [Concomitant]
     Active Substance: IRON
  11. FUROSEMIDE. [Concomitant]
     Active Substance: FUROSEMIDE
  12. ASA [Concomitant]
     Active Substance: ASPIRIN
  13. LIPITOR [Suspect]
     Active Substance: ATORVASTATIN CALCIUM
     Indication: HYPERLIPIDAEMIA
     Route: 048

REACTIONS (4)
  - Haematemesis [None]
  - Vomiting [None]
  - Therapy change [None]
  - Nausea [None]

NARRATIVE: CASE EVENT DATE: 20170521
